FAERS Safety Report 17812009 (Version 2)
Quarter: 2020Q2

REPORT INFORMATION
  Report Type: Report from Study
  Country: US (occurrence: US)
  Receive Date: 20200521
  Receipt Date: 20200618
  Transmission Date: 20200714
  Serious: Yes (Hospitalization, Other)
  Sender: FDA-Public Use
  Company Number: US-ROCHE-2598385

PATIENT
  Age: 61 Year
  Sex: Female
  Weight: 72.64 kg

DRUGS (7)
  1. TRAMADOL. [Concomitant]
     Active Substance: TRAMADOL
  2. LISINOPRIL. [Concomitant]
     Active Substance: LISINOPRIL
  3. ESTRADIOL. [Concomitant]
     Active Substance: ESTRADIOL
  4. OCREVUS [Suspect]
     Active Substance: OCRELIZUMAB
     Indication: PRIMARY PROGRESSIVE MULTIPLE SCLEROSIS
     Dosage: INFUSE 300MG ON DAY 1 AND DAY 15, INFUSE 600MG Q 6 MONTHS
     Route: 042
     Dates: start: 20180101
  5. LASIX [Concomitant]
     Active Substance: FUROSEMIDE
  6. OCREVUS [Suspect]
     Active Substance: OCRELIZUMAB
     Route: 042
  7. BACLOFEN. [Concomitant]
     Active Substance: BACLOFEN

REACTIONS (6)
  - Joint instability [Recovering/Resolving]
  - Asthenia [Recovering/Resolving]
  - Multiple sclerosis [Recovered/Resolved]
  - Encephalopathy [Recovered/Resolved]
  - Dehydration [Recovered/Resolved]
  - Hypotonia [Recovering/Resolving]

NARRATIVE: CASE EVENT DATE: 201907
